FAERS Safety Report 21307695 (Version 2)
Quarter: 2023Q1

REPORT INFORMATION
  Report Type: Spontaneous
  Country: DE (occurrence: DE)
  Receive Date: 20220908
  Receipt Date: 20230111
  Transmission Date: 20230418
  Serious: Yes (Death, Hospitalization)
  Sender: FDA-Public Use
  Company Number: DE-NOVARTISPH-NVSC2022DE201815

PATIENT
  Sex: Male
  Weight: 56 kg

DRUGS (11)
  1. CARBOPLATIN [Suspect]
     Active Substance: CARBOPLATIN
     Indication: Non-small cell lung cancer
     Dosage: 478.65 MG (478.65 - 413MG)
     Route: 065
     Dates: start: 20220725, end: 20220725
  2. PEMETREXED [Suspect]
     Active Substance: PEMETREXED
     Indication: Non-small cell lung cancer
     Dosage: 805 MG (805-895 MG)
     Route: 065
     Dates: start: 20220725, end: 20220725
  3. PEMBROLIZUMAB [Suspect]
     Active Substance: PEMBROLIZUMAB
     Indication: Non-small cell lung cancer
     Dosage: 200 MG
     Route: 065
     Dates: start: 20220725, end: 20220725
  4. METAMIZOL [Concomitant]
     Active Substance: METAMIZOLE SODIUM
     Indication: Product used for unknown indication
     Dosage: 750 MG, QD
     Route: 048
  5. BISOPROLOL [Concomitant]
     Active Substance: BISOPROLOL
     Indication: Product used for unknown indication
     Dosage: 10 MG, QD
     Route: 048
  6. FOLIC ACID [Concomitant]
     Active Substance: FOLIC ACID
     Indication: Product used for unknown indication
     Dosage: 4 MG, QD
     Route: 048
     Dates: start: 20220714
  7. LEVOTHYROXINE [Concomitant]
     Active Substance: LEVOTHYROXINE
     Indication: Product used for unknown indication
     Dosage: 75 UG, QD
     Route: 048
  8. VITAMIN B12 [Concomitant]
     Active Substance: CYANOCOBALAMIN
     Indication: Product used for unknown indication
     Dosage: UNK UNK, 4 X PER YEAR
     Route: 058
     Dates: start: 20220714
  9. ASPIRIN [Concomitant]
     Active Substance: ASPIRIN
     Indication: Product used for unknown indication
     Dosage: 100 MG, QD
     Route: 048
  10. RAMIPRIL-RATIOPHARM [Concomitant]
     Indication: Product used for unknown indication
     Dosage: 5 MG, QD
     Route: 048
  11. AREDIA [Concomitant]
     Active Substance: PAMIDRONATE DISODIUM
     Indication: Product used for unknown indication
     Dosage: 90 MG, QMO
     Route: 042
     Dates: start: 20220615

REACTIONS (4)
  - Shock haemorrhagic [Fatal]
  - Thrombocytopenia [Fatal]
  - Febrile neutropenia [Fatal]
  - Death [Fatal]

NARRATIVE: CASE EVENT DATE: 20220806
